FAERS Safety Report 5268530-0 (Version None)
Quarter: 2007Q1

REPORT INFORMATION
  Report Type: 
  Country: None (occurrence: None)
  Receive Date: 20070319
  Receipt Date: 20070307
  Transmission Date: 20070707
  Serious: Yes (Hospitalization, Other)
  Sender: FDA-Public Use
  Company Number: PHBS2006JP03073

PATIENT
  Age: 64 Year
  Sex: Female

DRUGS (8)
  1. NEORAL [Suspect]
     Indication: STEM CELL TRANSPLANT
     Dosage: UNK, UNK
     Route: 048
     Dates: start: 20030201
  2. NEORAL [Suspect]
     Dosage: 50 MG/D
     Route: 048
  3. NEORAL [Suspect]
     Dosage: 70 MG/D
     Route: 048
     Dates: end: 20050601
  4. PREDNISOLONE [Concomitant]
     Indication: GRAFT VERSUS HOST DISEASE
     Route: 048
  5. PREDNISOLONE [Concomitant]
     Dosage: 7.5 MG/D
     Route: 048
  6. PREDNISOLONE [Concomitant]
     Dosage: 60 MG/D
     Route: 048
  7. PREDNISOLONE [Concomitant]
     Dosage: 7.5 MG/D
     Route: 048
  8. METHYLPREDNISOLONE 16MG TAB [Suspect]
     Indication: STEM CELL TRANSPLANT

REACTIONS (13)
  - BLOOD LACTATE DEHYDROGENASE INCREASED [None]
  - CHRONIC GRAFT VERSUS HOST DISEASE [None]
  - GLOMERULONEPHRITIS [None]
  - HYPOALBUMINAEMIA [None]
  - NEPHROTIC SYNDROME [None]
  - OEDEMA [None]
  - PITTING OEDEMA [None]
  - PROTEINURIA [None]
  - SKIN LESION [None]
  - STOMATITIS [None]
  - THROMBOCYTOPENIA [None]
  - THROMBOTIC MICROANGIOPATHY [None]
  - WEIGHT INCREASED [None]
